FAERS Safety Report 9161630 (Version 4)
Quarter: 2016Q2

REPORT INFORMATION
  Report Type: Report from Study
  Country: JP (occurrence: JP)
  Receive Date: 20130313
  Receipt Date: 20160620
  Transmission Date: 20160815
  Serious: No
  Sender: FDA-Public Use
  Company Number: PHHY2012JP128064

PATIENT
  Age: 42 Year
  Sex: Male
  Weight: 52 kg

DRUGS (4)
  1. ALESION [Concomitant]
     Active Substance: EPINASTINE HYDROCHLORIDE
     Indication: RHINITIS ALLERGIC
     Dosage: 20 MG, UNK
     Route: 048
     Dates: end: 20120508
  2. DEPAKENE [Concomitant]
     Active Substance: VALPROIC ACID
     Indication: MULTIPLE SCLEROSIS
     Dosage: 800 MG, QD
     Route: 048
     Dates: start: 20120301, end: 20120323
  3. GILENYA [Suspect]
     Active Substance: FINGOLIMOD HYDROCHLORIDE
     Indication: MULTIPLE SCLEROSIS
     Dosage: 0.5 MG, QD
     Route: 048
     Dates: start: 20111208, end: 20120424
  4. TEGRETOL [Concomitant]
     Active Substance: CARBAMAZEPINE
     Indication: MULTIPLE SCLEROSIS
     Dosage: 200 MG, QD
     Route: 048
     Dates: start: 20120324, end: 20120422

REACTIONS (4)
  - Neutrophil percentage increased [Unknown]
  - Aspartate aminotransferase increased [Unknown]
  - Gamma-glutamyltransferase increased [Unknown]
  - Alanine aminotransferase increased [Unknown]

NARRATIVE: CASE EVENT DATE: 20120105
